FAERS Safety Report 14610158 (Version 1)
Quarter: 2018Q1

REPORT INFORMATION
  Report Type: Spontaneous
  Country: JP (occurrence: JP)
  Receive Date: 20180307
  Receipt Date: 20180307
  Transmission Date: 20180509
  Serious: Yes (Other)
  Sender: FDA-Public Use
  Company Number: PHHY2017JP175939

PATIENT
  Age: 48 Year
  Sex: Male
  Weight: 57 kg

DRUGS (10)
  1. PREDNISOLONE. [Suspect]
     Active Substance: PREDNISOLONE
     Indication: PLEURAL EFFUSION
  2. RIFAMPICIN [Suspect]
     Active Substance: RIFAMPIN
     Indication: TUBERCULOUS PLEURISY
     Dosage: 450 MG, QD
     Route: 065
  3. CYCLOPHOSPHAMIDE. [Suspect]
     Active Substance: CYCLOPHOSPHAMIDE
     Indication: PLEURAL EFFUSION
  4. CYCLOPHOSPHAMIDE. [Suspect]
     Active Substance: CYCLOPHOSPHAMIDE
     Indication: CHRONIC GRAFT VERSUS HOST DISEASE IN SKIN
     Dosage: 20 MG, QD
     Route: 065
  5. PREDNISOLONE. [Suspect]
     Active Substance: PREDNISOLONE
     Indication: PLEURAL EFFUSION
     Dosage: 20 MG, QD
     Route: 065
  6. CYCLOPHOSPHAMIDE. [Suspect]
     Active Substance: CYCLOPHOSPHAMIDE
     Indication: PLEURAL EFFUSION
  7. ISONIAZID. [Suspect]
     Active Substance: ISONIAZID
     Indication: TUBERCULOUS PLEURISY
     Dosage: 300 MG, QD
     Route: 065
  8. ETHAMBUTOL [Suspect]
     Active Substance: ETHAMBUTOL HYDROCHLORIDE
     Indication: TUBERCULOUS PLEURISY
     Dosage: 750 MG, QD
     Route: 065
  9. PYRAZINAMIDE. [Suspect]
     Active Substance: PYRAZINAMIDE
     Indication: TUBERCULOUS PLEURISY
     Dosage: 1300 MG, QD
     Route: 065
  10. PREDNISOLONE. [Suspect]
     Active Substance: PREDNISOLONE
     Indication: CHRONIC GRAFT VERSUS HOST DISEASE IN SKIN

REACTIONS (3)
  - Mycobacterial infection [Recovered/Resolved]
  - Drug ineffective [Unknown]
  - Pleurisy [Recovered/Resolved]
